FAERS Safety Report 6975783-7 (Version None)
Quarter: 2010Q3

REPORT INFORMATION
  Report Type: 
  Country: None (occurrence: None)
  Receive Date: 20100910
  Receipt Date: 20090326
  Transmission Date: 20110219
  Serious: No
  Sender: FDA-Public Use
  Company Number: US-WYE-H08733509

PATIENT
  Sex: Female
  Weight: 54.48 kg

DRUGS (4)
  1. PRISTIQ [Suspect]
     Indication: DEPRESSION
     Route: 048
     Dates: start: 20090301
  2. PRISTIQ [Suspect]
     Indication: PREMENSTRUAL SYNDROME
  3. MOBIC [Concomitant]
  4. ULTRAM [Concomitant]

REACTIONS (3)
  - DECREASED APPETITE [None]
  - INSOMNIA [None]
  - MIDDLE INSOMNIA [None]
